FAERS Safety Report 5654570-6 (Version None)
Quarter: 2008Q1

REPORT INFORMATION
  Report Type: 
  Country: None (occurrence: None)
  Receive Date: 20080307
  Receipt Date: 20080225
  Transmission Date: 20080703
  Serious: Yes (Hospitalization, Other)
  Sender: FDA-Public Use
  Company Number: US-JNJFOC-20080206329

PATIENT
  Sex: Female
  Weight: 108.86 kg

DRUGS (4)
  1. DURAGESIC-100 [Suspect]
     Dosage: 1X 50 UG/HR PATCH PLUS 1X 12.5 UG/HR PATCH
     Route: 062
  2. DURAGESIC-100 [Suspect]
     Indication: MULTIPLE SCLEROSIS
     Route: 062
  3. ZELNORM [Suspect]
     Indication: GASTRIC DISORDER
     Route: 048
  4. VICODIN [Concomitant]
     Indication: BREAKTHROUGH PAIN
     Route: 048

REACTIONS (14)
  - APPLICATION SITE ULCER [None]
  - BLINDNESS TRANSIENT [None]
  - COLITIS ISCHAEMIC [None]
  - DIPLOPIA [None]
  - DIZZINESS [None]
  - DRY SKIN [None]
  - EYE INJURY [None]
  - HEAD INJURY [None]
  - HEADACHE [None]
  - PAIN [None]
  - PHARMACEUTICAL PRODUCT COMPLAINT [None]
  - WEIGHT DECREASED [None]
  - WITHDRAWAL SYNDROME [None]
  - WRONG TECHNIQUE IN DRUG USAGE PROCESS [None]
